FAERS Safety Report 11718033 (Version 3)
Quarter: 2016Q3

REPORT INFORMATION
  Report Type: Spontaneous
  Country: US (occurrence: US)
  Receive Date: 20151110
  Receipt Date: 20160811
  Transmission Date: 20161109
  Serious: Yes (Other)
  Sender: FDA-Public Use
  Company Number: US-BAYER-2015-459651

PATIENT
  Age: 30 Year
  Sex: Female

DRUGS (2)
  1. MIRENA [Suspect]
     Active Substance: LEVONORGESTREL
  2. MIRENA [Suspect]
     Active Substance: LEVONORGESTREL
     Dosage: 20 MCG/24HR, CONT
     Route: 015
     Dates: start: 200902, end: 201412

REACTIONS (11)
  - Back pain [None]
  - Vision blurred [None]
  - Neck pain [None]
  - Headache [None]
  - Musculoskeletal pain [None]
  - Visual impairment [None]
  - Benign intracranial hypertension [None]
  - Diplopia [None]
  - Device use error [None]
  - Migraine [None]
  - Tinnitus [None]

NARRATIVE: CASE EVENT DATE: 201411
